FAERS Safety Report 8958388 (Version 1)
Quarter: 2012Q4

REPORT INFORMATION
  Report Type: 
  Country: ZA (occurrence: ZA)
  Receive Date: 20121210
  Receipt Date: 20121210
  Transmission Date: 20130627
  Serious: Yes (Hospitalization)
  Sender: FDA-Public Use
  Company Number: ZA-VIIV HEALTHCARE LIMITED-B0846922A

PATIENT
  Age: 34 Year
  Sex: Male

DRUGS (8)
  1. LAMIVUDINE-HIV [Suspect]
     Indication: HIV INFECTION
     Dosage: 150MG Twice per day
     Route: 065
     Dates: start: 200605
  2. EFAVIRENZ [Suspect]
     Indication: HIV INFECTION
     Dosage: 600MG At night
     Route: 065
     Dates: start: 200605
  3. STAVUDINE [Suspect]
     Indication: HIV INFECTION
     Dosage: 30MG Twice per day
     Route: 065
  4. RIFAMPICIN [Concomitant]
     Indication: TUBERCULOSIS
     Route: 048
  5. ISONIAZID [Concomitant]
     Indication: TUBERCULOSIS
     Route: 048
  6. ETHAMBUTOL [Concomitant]
     Indication: TUBERCULOSIS
     Route: 048
  7. PYRAZINAMIDE [Concomitant]
     Indication: TUBERCULOSIS
     Route: 048
  8. STREPTOMYCIN [Concomitant]
     Indication: TUBERCULOSIS
     Route: 048

REACTIONS (10)
  - Immune reconstitution inflammatory syndrome associated tuberculosis [Recovered/Resolved]
  - Tuberculosis [Unknown]
  - Respiratory distress [Unknown]
  - Diarrhoea [Unknown]
  - Hepatomegaly [Unknown]
  - Pyrexia [Unknown]
  - Productive cough [Unknown]
  - Dyspnoea exertional [Unknown]
  - Weight decreased [Unknown]
  - Lymphadenopathy [Unknown]
